FAERS Safety Report 9348785 (Version 2)
Quarter: 2013Q4

REPORT INFORMATION
  Report Type: Spontaneous
  Country: FR (occurrence: FR)
  Receive Date: 20130614
  Receipt Date: 20131125
  Transmission Date: 20140711
  Serious: Yes (Death)
  Sender: FDA-Public Use
  Company Number: FR-TEVA-411557ISR

PATIENT
  Age: 87 Year
  Sex: Male
  Weight: 83 kg

DRUGS (7)
  1. FUROSEMIDE TEVA 40 MG [Suspect]
     Indication: CARDIAC FAILURE
     Dosage: 80 MILLIGRAM DAILY; STARTED 15 DAYS AGO
     Route: 048
     Dates: start: 201305
  2. DIFFU K [Concomitant]
     Indication: CARDIAC FAILURE
     Dosage: 6 DOSAGE FORMS DAILY;
     Route: 048
  3. ATENOLOL [Concomitant]
     Indication: CARDIAC FAILURE
     Dosage: 50 MILLIGRAM DAILY;
     Route: 048
  4. PREVISCAN [Concomitant]
     Indication: CARDIAC FAILURE
     Dosage: 3 TO 4 DF DAILY
     Route: 048
  5. PRAVASTATIN [Concomitant]
     Indication: CARDIAC FAILURE
     Dosage: 1 DOSAGE FORMS DAILY;
     Route: 048
  6. TRINITRIN [Concomitant]
     Indication: CARDIAC FAILURE
     Route: 062
  7. AMIODARONE [Concomitant]
     Indication: CARDIAC FAILURE
     Dosage: 1 DOSAGE FORMS DAILY;
     Route: 048

REACTIONS (3)
  - Cardiac failure [Fatal]
  - Respiratory tract infection [Fatal]
  - Renal failure [Fatal]
